FAERS Safety Report 19452878 (Version 2)
Quarter: 2021Q3

REPORT INFORMATION
  Report Type: Spontaneous
  Country: US (occurrence: US)
  Receive Date: 20210623
  Receipt Date: 20210712
  Transmission Date: 20211014
  Serious: Yes (Other)
  Sender: FDA-Public Use
  Company Number: US-ORGANON-O2106USA001387

PATIENT
  Age: 30 Year
  Sex: Female
  Weight: 77.55 kg

DRUGS (1)
  1. NEXPLANON [Suspect]
     Active Substance: ETONOGESTREL
     Indication: CONTRACEPTION
     Dosage: 1 DOSAGE FORM (68 MG)
     Route: 059
     Dates: start: 201801, end: 20210514

REACTIONS (5)
  - Pregnancy with implant contraceptive [Not Recovered/Not Resolved]
  - Chlamydia test positive [Unknown]
  - Trichomoniasis [Unknown]
  - Unintended pregnancy [Not Recovered/Not Resolved]
  - Incorrect product administration duration [Unknown]

NARRATIVE: CASE EVENT DATE: 202101
